FAERS Safety Report 7846795-6 (Version None)
Quarter: 2011Q4

REPORT INFORMATION
  Report Type: 
  Country: None (occurrence: None)
  Receive Date: 20111025
  Receipt Date: 20111019
  Transmission Date: 20120403
  Serious: Yes (Other)
  Sender: FDA-Public Use
  Company Number: PHHY2011JP59299

PATIENT
  Sex: Male
  Weight: 45 kg

DRUGS (12)
  1. ZOMETA [Suspect]
     Indication: METASTASES TO BONE
     Dosage: 4 MG, QMO
     Route: 041
     Dates: start: 20100121
  2. OMEPRAZOLE [Concomitant]
     Indication: GASTRIC ULCER
     Dosage: 10 MG, UNK
     Route: 048
     Dates: start: 20080729
  3. CANDESARTAN CILEXETIL [Concomitant]
     Indication: HYPERTENSION
     Dosage: 4 MG, UNK
     Route: 048
     Dates: start: 20091224
  4. ETHINYL ESTRADIOL [Concomitant]
     Indication: PROSTATE CANCER
     Route: 048
     Dates: start: 20100121
  5. ORAL IRRIGATION [Concomitant]
     Route: 048
  6. URIEF [Concomitant]
     Indication: BENIGN PROSTATIC HYPERPLASIA
     Dosage: 2 DF, UNK
     Route: 048
     Dates: start: 20090203
  7. ASPIRIN [Concomitant]
     Indication: PROPHYLAXIS
     Dosage: 100 MG, UNK
     Route: 048
     Dates: start: 20100121
  8. LOXONIN [Concomitant]
     Route: 048
  9. MEIACT [Concomitant]
     Route: 048
  10. DECADRON [Concomitant]
     Indication: PROSTATE CANCER
     Dosage: 4 DF, UNK
     Route: 048
     Dates: start: 20100907
  11. DUTASTERIDE [Concomitant]
     Indication: BENIGN PROSTATIC HYPERPLASIA
     Dosage: 1 DF, UNK
     Route: 048
     Dates: start: 20100318, end: 20110112
  12. UFT [Concomitant]
     Indication: PROSTATE CANCER
     Dosage: 3 DF, UNK
     Route: 048
     Dates: start: 20110113

REACTIONS (10)
  - GINGIVAL ABSCESS [None]
  - EXPOSED BONE IN JAW [None]
  - OSTEOMYELITIS [None]
  - ERYTHEMA [None]
  - SOFT TISSUE INFECTION [None]
  - PAIN IN JAW [None]
  - OSTEONECROSIS OF JAW [None]
  - PERIODONTITIS [None]
  - BLOOD ALKALINE PHOSPHATASE INCREASED [None]
  - SWELLING [None]
